FAERS Safety Report 5520706-0 (Version None)
Quarter: 2007Q4

REPORT INFORMATION
  Report Type: 
  Country: None (occurrence: None)
  Receive Date: 20071119
  Receipt Date: 20071112
  Transmission Date: 20080405
  Serious: Yes (Other)
  Sender: FDA-Public Use
  Company Number: US-BAYER-200712375BCC

PATIENT
  Sex: Female
  Weight: 82 kg

DRUGS (1)
  1. NEO-SYNEPHRINE 12 HOUR MOISTURIZING SPRAY [Suspect]
     Indication: NASAL CONGESTION
     Route: 045
     Dates: start: 19970101

REACTIONS (1)
  - DRUG ABUSER [None]
